FAERS Safety Report 8334512-5 (Version None)
Quarter: 2012Q2

REPORT INFORMATION
  Report Type: 
  Country: None (occurrence: None)
  Receive Date: 20120503
  Receipt Date: 20110926
  Transmission Date: 20120825
  Serious: Yes (Other)
  Sender: FDA-Public Use
  Company Number: US-PFIZER INC-2011228711

PATIENT

DRUGS (1)
  1. ZYVOX [Suspect]
     Route: 048

REACTIONS (1)
  - HYPERKALAEMIA [None]
